FAERS Safety Report 11492755 (Version 1)
Quarter: 2015Q3

REPORT INFORMATION
  Report Type: Report from Study
  Country: US (occurrence: US)
  Receive Date: 20150911
  Receipt Date: 20150911
  Transmission Date: 20151125
  Serious: No
  Sender: FDA-Public Use
  Company Number: US-AMGEN-USASP2015089611

PATIENT
  Age: 71 Year
  Sex: Male

DRUGS (1)
  1. ENBREL [Suspect]
     Active Substance: ETANERCEPT
     Indication: PRODUCT USED FOR UNKNOWN INDICATION
     Dosage: UNK
     Route: 065

REACTIONS (9)
  - Secretion discharge [Unknown]
  - Joint swelling [Unknown]
  - Haemoptysis [Unknown]
  - Insomnia [Unknown]
  - Mobility decreased [Unknown]
  - Arthralgia [Unknown]
  - Musculoskeletal pain [Unknown]
  - Malaise [Unknown]
  - Peripheral swelling [Unknown]

NARRATIVE: CASE EVENT DATE: 20131017
